FAERS Safety Report 9788689 (Version 2)
Quarter: 2014Q1

REPORT INFORMATION
  Report Type: Spontaneous
  Country: FI (occurrence: JP)
  Receive Date: 20131230
  Receipt Date: 20140117
  Transmission Date: 20141002
  Serious: Yes (Disabling)
  Sender: FDA-Public Use
  Company Number: FI-UPSHER-SMITH LABORATORIES, INC.-13004265

PATIENT
  Sex: 0

DRUGS (3)
  1. DIVIGEL [Suspect]
     Indication: MENOPAUSAL SYMPTOMS
     Dosage: 1 MG, QD
     Route: 061
     Dates: start: 2009
  2. GLIMEPIRIDE [Concomitant]
  3. CALSLOT [Concomitant]

REACTIONS (2)
  - Cerebral infarction [Recovering/Resolving]
  - Hemiplegia [Recovering/Resolving]
